FAERS Safety Report 24185462 (Version 10)
Quarter: 2025Q1

REPORT INFORMATION
  Report Type: Spontaneous
  Country: US (occurrence: US)
  Receive Date: 20240807
  Receipt Date: 20250317
  Transmission Date: 20250408
  Serious: Yes (Other)
  Sender: PFIZER
  Company Number: US-PFIZER INC-PV202400100204

PATIENT
  Age: 16 Year
  Sex: Male
  Weight: 68.04 kg

DRUGS (4)
  1. GENOTROPIN [Suspect]
     Active Substance: SOMATROPIN
     Indication: Growth retardation
     Dates: start: 2019
  2. GENOTROPIN [Suspect]
     Active Substance: SOMATROPIN
     Indication: Testicular retraction
     Dosage: ALTERNATE 1.4 MG AND 1.6 MG (1.5MG) SQ QD
     Route: 058
  3. GENOTROPIN [Suspect]
     Active Substance: SOMATROPIN
     Dosage: ALTERNATE 1.4 MG AND 1.6 MG (1.5MG) SQ QD
     Route: 058
  4. STRATTERA [Concomitant]
     Active Substance: ATOMOXETINE HYDROCHLORIDE
     Indication: Attention deficit hyperactivity disorder

REACTIONS (5)
  - Upper limb fracture [Unknown]
  - Incorrect dose administered by device [Unknown]
  - Drug dose omission by device [Unknown]
  - Device information output issue [Unknown]
  - Device use issue [Unknown]
